FAERS Safety Report 13284676 (Version 3)
Quarter: 2017Q1

REPORT INFORMATION
  Report Type: Report from Study
  Country: IT (occurrence: IT)
  Receive Date: 20170301
  Receipt Date: 20170315
  Transmission Date: 20170428
  Serious: Yes (Other)
  Sender: FDA-Public Use
  Company Number: IT-TEVA-744428ACC

PATIENT
  Age: 73 Year
  Sex: Female

DRUGS (1)
  1. PIOGLITAZONE. [Suspect]
     Active Substance: PIOGLITAZONE
     Indication: PRODUCT USED FOR UNKNOWN INDICATION
     Dates: start: 20150201, end: 20150201

REACTIONS (1)
  - Eye haemorrhage [Unknown]

NARRATIVE: CASE EVENT DATE: 20150202
